FAERS Safety Report 6645587-3 (Version None)
Quarter: 2010Q1

REPORT INFORMATION
  Report Type: 
  Country: None (occurrence: None)
  Receive Date: 20100319
  Receipt Date: 20100319
  Transmission Date: 20100710
  Serious: Yes (Hospitalization, Other)
  Sender: FDA-Public Use
  Company Number: None

PATIENT
  Sex: Female
  Weight: 73.4827 kg

DRUGS (1)
  1. MIRENA [Suspect]
     Indication: CONTRACEPTION
     Dosage: 1 IUD DAILY ITRA-UTERINE
     Route: 015
     Dates: start: 20080330, end: 20100318

REACTIONS (16)
  - BREAST TENDERNESS [None]
  - COMPLICATION OF DEVICE INSERTION [None]
  - DEPRESSION [None]
  - FATIGUE [None]
  - HEADACHE [None]
  - IRRITABILITY [None]
  - MIGRAINE [None]
  - MOOD SWINGS [None]
  - MUSCLE SPASMS [None]
  - NIGHT SWEATS [None]
  - OVARIAN CYST [None]
  - OVARIAN TORSION [None]
  - PAIN [None]
  - RESTLESS LEGS SYNDROME [None]
  - VOMITING [None]
  - WEIGHT INCREASED [None]
